FAERS Safety Report 10129190 (Version 1)
Quarter: 2014Q2

REPORT INFORMATION
  Report Type: Spontaneous
  Country: US (occurrence: None)
  Receive Date: 20140425
  Receipt Date: 20140425
  Transmission Date: 20141212
  Serious: Yes (Life-Threatening)
  Sender: FDA-Public Use
  Company Number: None

PATIENT
  Age: 51 Year
  Sex: Female
  Weight: 119.3 kg

DRUGS (1)
  1. CYMBALTA [Suspect]
     Dosage: 1 DOSE DAILY BY MOUTH
     Route: 048
     Dates: start: 2012

REACTIONS (1)
  - Haemorrhage [None]
